FAERS Safety Report 7586717-9 (Version None)
Quarter: 2011Q2

REPORT INFORMATION
  Report Type: 
  Country: None (occurrence: None)
  Receive Date: 20110627
  Receipt Date: 20110620
  Transmission Date: 20111010
  Serious: Yes (Other)
  Sender: FDA-Public Use
  Company Number: 2011SP024227

PATIENT
  Sex: Female

DRUGS (1)
  1. SAPHRIS [Suspect]
     Indication: BIPOLAR I DISORDER
     Dosage: 5 MG;BID;SL ; 10 MG;BID;SL ; 5 MG;BID;SL
     Route: 060

REACTIONS (2)
  - MANIA [None]
  - EXTRAPYRAMIDAL DISORDER [None]
